FAERS Safety Report 7782434-0 (Version None)
Quarter: 2011Q3

REPORT INFORMATION
  Report Type: 
  Country: None (occurrence: None)
  Receive Date: 20110928
  Receipt Date: 20110914
  Transmission Date: 20111222
  Serious: Yes (Disabling, Other)
  Sender: FDA-Public Use
  Company Number: JP-SP-2011-06494

PATIENT
  Sex: Male

DRUGS (1)
  1. IMMUCYST [Suspect]
     Indication: URETHRAL CANCER
     Route: 043
     Dates: start: 20070401, end: 20070501

REACTIONS (5)
  - TUBERCULOSIS BLADDER [None]
  - OFF LABEL USE [None]
  - DYSURIA [None]
  - CONTRACTED BLADDER [None]
  - URINE ANALYSIS ABNORMAL [None]
